FAERS Safety Report 5076421-3 (Version None)
Quarter: 2006Q3

REPORT INFORMATION
  Report Type: 
  Country: None (occurrence: None)
  Receive Date: 20060725
  Receipt Date: 20060412
  Transmission Date: 20061208
  Serious: No
  Sender: FDA-Public Use
  Company Number: 200612463BWH

PATIENT
  Age: 63 Year
  Sex: Female
  Weight: 77.5651 kg

DRUGS (8)
  1. NEXAVAR [Suspect]
     Indication: RENAL CELL CARCINOMA STAGE UNSPECIFIED
     Dosage: 400 MG, BID, ORAL
     Route: 048
     Dates: start: 20060331, end: 20060411
  2. SYNTHROID [Concomitant]
  3. ESTRACE [Concomitant]
  4. ZOLOFT [Concomitant]
  5. AMBIEN [Concomitant]
  6. MOTRIN [Concomitant]
  7. ATIVAN [Concomitant]
  8. CELEBREX [Concomitant]

REACTIONS (2)
  - BLISTER [None]
  - RASH MACULAR [None]
